FAERS Safety Report 9807465 (Version 1)
Quarter: 2014Q1

REPORT INFORMATION
  Report Type: Spontaneous
  Country: US (occurrence: US)
  Receive Date: 20140110
  Receipt Date: 20140110
  Transmission Date: 20141002
  Serious: No
  Sender: FDA-Public Use
  Company Number: US-PFIZER INC-2014006031

PATIENT
  Age: 50 Year
  Sex: Female
  Weight: 88.4 kg

DRUGS (2)
  1. PRISTIQ [Suspect]
     Indication: STRESS
     Dosage: 50 MG, DAILY
     Dates: start: 201205
  2. PRISTIQ [Suspect]
     Indication: ANXIETY

REACTIONS (5)
  - Withdrawal syndrome [Unknown]
  - Dizziness [Unknown]
  - Tinnitus [Unknown]
  - Vision blurred [Unknown]
  - Nausea [Unknown]
